FAERS Safety Report 25362569 (Version 1)
Quarter: 2025Q2

REPORT INFORMATION
  Report Type: Report from Study
  Country: CA (occurrence: CA)
  Receive Date: 20250527
  Receipt Date: 20250527
  Transmission Date: 20250717
  Serious: Yes (Other)
  Sender: MYLAN
  Company Number: CA-MYLANLABS-2025M1044680

PATIENT
  Age: 13 Year
  Sex: Male

DRUGS (12)
  1. TOBRAMYCIN [Suspect]
     Active Substance: TOBRAMYCIN
     Indication: Antibiotic therapy
  2. TOBRAMYCIN [Suspect]
     Active Substance: TOBRAMYCIN
     Route: 065
  3. TOBRAMYCIN [Suspect]
     Active Substance: TOBRAMYCIN
     Route: 065
  4. TOBRAMYCIN [Suspect]
     Active Substance: TOBRAMYCIN
  5. VANCOMYCIN [Suspect]
     Active Substance: VANCOMYCIN
     Indication: Antibiotic therapy
  6. VANCOMYCIN [Suspect]
     Active Substance: VANCOMYCIN
     Route: 065
  7. VANCOMYCIN [Suspect]
     Active Substance: VANCOMYCIN
     Route: 065
  8. VANCOMYCIN [Suspect]
     Active Substance: VANCOMYCIN
  9. RIFAMPIN [Suspect]
     Active Substance: RIFAMPIN
     Indication: Antibiotic therapy
  10. RIFAMPIN [Suspect]
     Active Substance: RIFAMPIN
     Route: 065
  11. RIFAMPIN [Suspect]
     Active Substance: RIFAMPIN
     Route: 065
  12. RIFAMPIN [Suspect]
     Active Substance: RIFAMPIN

REACTIONS (1)
  - Drug reaction with eosinophilia and systemic symptoms [Unknown]
